FAERS Safety Report 10617671 (Version 1)
Quarter: 2014Q4

REPORT INFORMATION
  Report Type: Spontaneous
  Country: PL (occurrence: PL)
  Receive Date: 20141201
  Receipt Date: 20141201
  Transmission Date: 20150529
  Serious: Yes (Other)
  Sender: FDA-Public Use
  Company Number: PL-WATSON-2014-25566

PATIENT
  Age: 58 Year
  Sex: Female
  Weight: 42 kg

DRUGS (2)
  1. CISPLATIN TEVA [Suspect]
     Active Substance: CISPLATIN
     Indication: NEOPLASM MALIGNANT
     Dosage: 33 MG, UNKNOWN
     Route: 042
     Dates: start: 20140825, end: 20140827
  2. ETOPOSID ACTAVIS [Suspect]
     Active Substance: ETOPOSIDE
     Indication: NEOPLASM MALIGNANT
     Dosage: 130 MG, UNKNOWN
     Route: 042
     Dates: start: 20140825, end: 20140827

REACTIONS (2)
  - Thrombocytopenia [Recovered/Resolved]
  - Anaemia [Recovered/Resolved]

NARRATIVE: CASE EVENT DATE: 20140915
